FAERS Safety Report 16810112 (Version 3)
Quarter: 2020Q2

REPORT INFORMATION
  Report Type: Spontaneous
  Country: US (occurrence: US)
  Receive Date: 20190916
  Receipt Date: 20200601
  Transmission Date: 20200713
  Serious: Yes (Other)
  Sender: FDA-Public Use
  Company Number: US-GILEAD-2019-0428023

PATIENT
  Age: 48 Year
  Sex: Male
  Weight: 136.51 kg

DRUGS (27)
  1. ATRIPLA [Suspect]
     Active Substance: EFAVIRENZ\EMTRICITABINE\TENOFOVIR DISOPROXIL FUMARATE
     Indication: HIV INFECTION
     Dosage: UNK
     Route: 065
     Dates: start: 200904, end: 201606
  2. NITROGLYCERIN. [Concomitant]
     Active Substance: NITROGLYCERIN
  3. NEURONTIN [Concomitant]
     Active Substance: GABAPENTIN
  4. DESCOVY [Concomitant]
     Active Substance: EMTRICITABINE\TENOFOVIR ALAFENAMIDE FUMARATE
  5. CLONAZEPAM. [Concomitant]
     Active Substance: CLONAZEPAM
  6. ACIPHEX [Concomitant]
     Active Substance: RABEPRAZOLE SODIUM
  7. TOPROL XL [Concomitant]
     Active Substance: METOPROLOL SUCCINATE
  8. HYDROCHLOROTHIAZIDE. [Concomitant]
     Active Substance: HYDROCHLOROTHIAZIDE
  9. CELEBREX [Concomitant]
     Active Substance: CELECOXIB
  10. POTASSIUM [Concomitant]
     Active Substance: POTASSIUM
  11. TRILEPTAL [Concomitant]
     Active Substance: OXCARBAZEPINE
  12. ULTRACET [Concomitant]
     Active Substance: ACETAMINOPHEN\TRAMADOL HYDROCHLORIDE
  13. TRUVADA [Suspect]
     Active Substance: EMTRICITABINE\TENOFOVIR DISOPROXIL FUMARATE
     Indication: HIV INFECTION
     Dosage: UNK
     Route: 065
  14. BACLOFEN. [Concomitant]
     Active Substance: BACLOFEN
  15. LISINOPRIL. [Concomitant]
     Active Substance: LISINOPRIL
  16. BIKTARVY [Concomitant]
     Active Substance: BICTEGRAVIR SODIUM\EMTRICITABINE\TENOFOVIR ALAFENAMIDE FUMARATE
  17. AMBIEN [Concomitant]
     Active Substance: ZOLPIDEM TARTRATE
  18. GLUCOSAMINE [Concomitant]
     Active Substance: GLUCOSAMINE
  19. SUSTIVA [Concomitant]
     Active Substance: EFAVIRENZ
  20. IMDUR [Concomitant]
     Active Substance: ISOSORBIDE MONONITRATE
  21. LIPITOR [Concomitant]
     Active Substance: ATORVASTATIN CALCIUM
  22. NORVASC [Concomitant]
     Active Substance: AMLODIPINE BESYLATE
  23. LEXAPRO [Concomitant]
     Active Substance: ESCITALOPRAM OXALATE
  24. LODINE [Concomitant]
     Active Substance: ETODOLAC
  25. WELLBUTRIN [Concomitant]
     Active Substance: BUPROPION HYDROCHLORIDE
  26. COMBIVIR [Concomitant]
     Active Substance: LAMIVUDINE\ZIDOVUDINE
  27. SYNTHROID [Concomitant]
     Active Substance: LEVOTHYROXINE SODIUM

REACTIONS (7)
  - Anhedonia [Unknown]
  - Pain [Unknown]
  - Economic problem [Unknown]
  - Chronic kidney disease [Not Recovered/Not Resolved]
  - Renal failure [Unknown]
  - Anxiety [Unknown]
  - Emotional distress [Unknown]

NARRATIVE: CASE EVENT DATE: 20050822
